FAERS Safety Report 19244216 (Version 2)
Quarter: 2021Q2

REPORT INFORMATION
  Report Type: Report from Study
  Country: None (occurrence: IL)
  Receive Date: 20210512
  Receipt Date: 20210617
  Transmission Date: 20210717
  Serious: Yes (Death)
  Sender: FDA-Public Use
  Company Number: IL-ABBVIE-21K-082-3898524-00

PATIENT
  Age: 76 Year
  Sex: Male
  Weight: 66 kg

DRUGS (8)
  1. VENETOCLAX. [Suspect]
     Active Substance: VENETOCLAX
     Indication: ACUTE MYELOID LEUKAEMIA
     Dosage: 100 MG, DISCONTINUATION DEATH OF THE PATIENT
     Route: 048
     Dates: start: 20210307, end: 20210329
  2. CLOPIDOGREL [Concomitant]
     Active Substance: CLOPIDOGREL BISULFATE
     Indication: MYOCARDIAL INFARCTION
     Dates: start: 20200325
  3. COVID?19 VACCINE [Concomitant]
     Indication: COVID-19 IMMUNISATION
     Dosage: PFIZER
     Dates: start: 20201222, end: 20201222
  4. LERCAPRESS [Concomitant]
     Indication: HYPERTENSION
     Dates: start: 20180708
  5. OMEPRAZOLE. [Concomitant]
     Active Substance: OMEPRAZOLE
     Indication: GASTROOESOPHAGEAL REFLUX PROPHYLAXIS
     Dates: start: 20140617
  6. TRITACE [Concomitant]
     Active Substance: RAMIPRIL
     Indication: HYPERTENSION
     Dates: start: 20200325
  7. AZACITIDINE. [Suspect]
     Active Substance: AZACITIDINE
     Indication: ACUTE MYELOID LEUKAEMIA
     Dosage: 130 MG CYCLE 1
     Route: 058
     Dates: start: 20210307, end: 20210313
  8. COVID?19 VACCINE [Concomitant]
     Dosage: PFIZER
     Dates: start: 20210112, end: 20210112

REACTIONS (1)
  - Pneumonia [Fatal]

NARRATIVE: CASE EVENT DATE: 20210308
